FAERS Safety Report 20433556 (Version 1)
Quarter: 2022Q1

REPORT INFORMATION
  Report Type: Report from Study
  Country: US (occurrence: US)
  Receive Date: 20220205
  Receipt Date: 20220205
  Transmission Date: 20220423
  Serious: Yes (Hospitalization)
  Sender: FDA-Public Use
  Company Number: US-REGENERON PHARMACEUTICALS, INC.-2022-19383

PATIENT
  Age: 82 Year
  Sex: Male

DRUGS (1)
  1. CASIRIVIMAB\IMDEVIMAB [Suspect]
     Active Substance: CASIRIVIMAB\IMDEVIMAB
     Indication: COVID-19
     Dosage: 1200 MG, SINGLE
     Route: 042
     Dates: start: 20210903, end: 20210903

REACTIONS (8)
  - Micturition urgency [Recovering/Resolving]
  - Pollakiuria [Recovering/Resolving]
  - Chills [Recovering/Resolving]
  - Oxygen saturation decreased [Recovering/Resolving]
  - Respiratory rate increased [Recovering/Resolving]
  - Infusion related hypersensitivity reaction [Recovering/Resolving]
  - Atrial fibrillation [Recovering/Resolving]
  - COVID-19 pneumonia [Recovering/Resolving]

NARRATIVE: CASE EVENT DATE: 20210903
